FAERS Safety Report 8431720-X (Version None)
Quarter: 2012Q2

REPORT INFORMATION
  Report Type: 
  Country: None (occurrence: None)
  Receive Date: 20120606
  Receipt Date: 20120528
  Transmission Date: 20120825
  Serious: Yes (Hospitalization, Other)
  Sender: FDA-Public Use
  Company Number: AUR-APL-2012-02454

PATIENT
  Age: 18 Year
  Sex: Female
  Weight: 54.7 kg

DRUGS (5)
  1. CITALOPRAM HYDROBROMIDE [Suspect]
     Indication: OBSESSIVE-COMPULSIVE DISORDER
     Dosage: (5 MG),   (10 MG),   (15 MG),   (30 MG),    (40 MG, )
  2. CITALOPRAM HYDROBROMIDE [Suspect]
     Indication: ANOREXIA NERVOSA
     Dosage: (5 MG),   (10 MG),   (15 MG),   (30 MG),    (40 MG, )
  3. CITALOPRAM HYDROBROMIDE [Suspect]
     Indication: DEPRESSION
     Dosage: (5 MG),   (10 MG),   (15 MG),   (30 MG),    (40 MG, )
  4. ARIPIPRAZOLE [Suspect]
     Indication: DEPRESSION
  5. ARIPIPRAZOLE [Suspect]
     Indication: OBSESSIVE-COMPULSIVE DISORDER

REACTIONS (12)
  - DECREASED APPETITE [None]
  - SUICIDAL IDEATION [None]
  - INTENTIONAL SELF-INJURY [None]
  - AFFECT LABILITY [None]
  - PURGING [None]
  - DEPRESSION [None]
  - CONDITION AGGRAVATED [None]
  - WEIGHT DECREASED [None]
  - MAJOR DEPRESSION [None]
  - OBSESSIVE-COMPULSIVE DISORDER [None]
  - EATING DISORDER [None]
  - BRADYCARDIA [None]
